FAERS Safety Report 25039562 (Version 1)
Quarter: 2025Q1

REPORT INFORMATION
  Report Type: Spontaneous
  Country: IT (occurrence: IT)
  Receive Date: 20250305
  Receipt Date: 20250305
  Transmission Date: 20250409
  Serious: Yes (Death, Other)
  Sender: JAZZ
  Company Number: IT-JAZZ PHARMACEUTICALS-2025-IT-005569

PATIENT

DRUGS (1)
  1. VYXEOS [Suspect]
     Active Substance: CYTARABINE\DAUNORUBICIN
     Indication: Acute myeloid leukaemia
     Dates: start: 202304

REACTIONS (4)
  - Disease progression [Fatal]
  - Therapy non-responder [Fatal]
  - Respiratory failure [Unknown]
  - Pneumonia [Unknown]
